FAERS Safety Report 4935626-X (Version None)
Quarter: 2006Q1

REPORT INFORMATION
  Report Type: 
  Country: None (occurrence: None)
  Receive Date: 20060302
  Receipt Date: 20060214
  Transmission Date: 20060701
  Serious: Yes (Hospitalization)
  Sender: FDA-Public Use
  Company Number: US200602003088

PATIENT
  Age: 79 Year
  Sex: Male

DRUGS (4)
  1. FORTEO [Suspect]
     Indication: OSTEOPOROSIS
     Dates: start: 20040601, end: 20060101
  2. FORTEO [Suspect]
     Indication: OSTEOPOROSIS
     Dates: start: 20060120
  3. FORTEO [Concomitant]
  4. WARFARIN SODIUM [Concomitant]

REACTIONS (1)
  - CARDIOGENIC SHOCK [None]
